FAERS Safety Report 23347066 (Version 1)
Quarter: 2023Q4

REPORT INFORMATION
  Report Type: Spontaneous
  Country: US (occurrence: None)
  Receive Date: 20231227
  Receipt Date: 20231227
  Transmission Date: 20240110
  Serious: No
  Sender: FDA-Public Use
  Company Number: None

PATIENT
  Sex: Male

DRUGS (1)
  1. STIVARGA [Suspect]
     Active Substance: REGORAFENIB
     Indication: Colon cancer
     Dosage: 40MG BY MOUTH?? STATES THIS HAPPENED WHEN CHANGED DOSE FROM 2 TABLETS DAILY TO 3 TABLETS DAILY - PAT
     Route: 048
     Dates: start: 202312

REACTIONS (2)
  - Epistaxis [None]
  - Therapy change [None]
